FAERS Safety Report 7629002-9 (Version None)
Quarter: 2011Q3

REPORT INFORMATION
  Report Type: 
  Country: None (occurrence: None)
  Receive Date: 20110722
  Receipt Date: 20110710
  Transmission Date: 20111222
  Serious: Yes (Death, Life-Threatening, Hospitalization)
  Sender: FDA-Public Use
  Company Number: CA-SANOFI-AVENTIS-2011SA002564

PATIENT
  Age: 79 Year
  Sex: Female
  Weight: 64.5 kg

DRUGS (10)
  1. HYDROCHLOROTHIAZIDE [Concomitant]
  2. WARFARIN SODIUM [Concomitant]
  3. ALTACE [Concomitant]
  4. ALBUTEROL SULATE [Concomitant]
  5. BLINDED THERAPY [Suspect]
     Route: 048
     Dates: start: 20101119, end: 20101123
  6. FUROSEMIDE [Concomitant]
  7. AMLODIPINE BESYLATE [Concomitant]
  8. DRONEDARONE HCL [Suspect]
     Route: 048
     Dates: start: 20101124, end: 20101208
  9. CIPROFLOXACIN [Concomitant]
  10. MOXIFLOXACIN [Concomitant]

REACTIONS (5)
  - INTERSTITIAL LUNG DISEASE [None]
  - ALANINE AMINOTRANSFERASE INCREASED [None]
  - DYSPNOEA [None]
  - PULMONARY EMBOLISM [None]
  - CARDIAC FAILURE CONGESTIVE [None]
